FAERS Safety Report 10020102 (Version 1)
Quarter: 2014Q1

REPORT INFORMATION
  Report Type: Spontaneous
  Country: FR (occurrence: FR)
  Receive Date: 20140318
  Receipt Date: 20140318
  Transmission Date: 20141002
  Serious: Yes (Life-Threatening, Hospitalization)
  Sender: FDA-Public Use
  Company Number: FR-ROCHE-1363288

PATIENT
  Age: 80 Year
  Sex: Male

DRUGS (10)
  1. VALIUM [Suspect]
     Indication: AGITATION
     Dosage: 10 MG/2ML
     Route: 065
     Dates: start: 20140121, end: 20140124
  2. MIDAZOLAM PANPHARMA [Suspect]
     Indication: AGITATION
     Dosage: 5 MG/ML
     Route: 065
     Dates: start: 20140120, end: 20140121
  3. TRANXENE [Suspect]
     Indication: AGITATION
     Dosage: 50 MG /2.5 ML
     Route: 065
     Dates: start: 20140121, end: 20140121
  4. LOXAPAC [Suspect]
     Indication: AGITATION
     Dosage: 50 MG / 2 ML, AMPOULE FOR INJECTABLE SOLUTION (IM)
     Route: 065
     Dates: start: 20140121, end: 20140121
  5. TOPALGIC (FRANCE) [Suspect]
     Indication: PRODUCT USED FOR UNKNOWN INDICATION
     Dosage: 100 MG / 2 ML, AMPOULE FOR INJECTABLE SOLUTION
     Route: 065
     Dates: start: 20140120, end: 20140125
  6. HYDROXYZINE [Suspect]
     Indication: PRODUCT USED FOR UNKNOWN INDICATION
     Dosage: REPORTED AS: HYDROXYZINE RENAUDIN, 100 MG / 2 ML
     Route: 065
     Dates: start: 20140122, end: 20140124
  7. ASPEGIC (FRANCE) [Concomitant]
     Dosage: 500 MG / 5 ML, POWDER AND SOLUTION FOR PARENTERAL USE
     Route: 065
  8. BECILAN [Concomitant]
     Dosage: 250 MG / 5 ML
     Route: 065
  9. PARACETAMOL [Concomitant]
     Dosage: PARACETAMOL B BRAUN
     Route: 065
  10. ACICLOVIR [Concomitant]

REACTIONS (2)
  - Respiratory distress [Recovered/Resolved]
  - Coma [Recovered/Resolved]
